FAERS Safety Report 23849281 (Version 1)
Quarter: 2024Q2

REPORT INFORMATION
  Report Type: Spontaneous
  Country: US (occurrence: US)
  Receive Date: 20240513
  Receipt Date: 20240513
  Transmission Date: 20240715
  Serious: No
  Sender: FDA-Public Use
  Company Number: US-FreseniusKabi-FK202407542

PATIENT
  Age: 69 Year
  Sex: Female
  Weight: 108.4 kg

DRUGS (2)
  1. DIPRIVAN [Suspect]
     Active Substance: ISOPROPYL ALCOHOL\PROPOFOL
     Indication: Sedation
     Dosage: 150 MCG PER KG PER MIN; ADDITIONAL BOLUS: 50MG, 50 MG, 50 MG, 50 MG, 20 MG?FORM OF ADMIN: INJECTABLE
     Route: 042
     Dates: start: 20240508, end: 20240508
  2. DIPRIVAN [Suspect]
     Active Substance: ISOPROPYL ALCOHOL\PROPOFOL
     Indication: Oesophagogastroduodenoscopy

REACTIONS (1)
  - Therapeutic product effect decreased [Unknown]

NARRATIVE: CASE EVENT DATE: 20240508
